FAERS Safety Report 5447094-2 (Version None)
Quarter: 2007Q3

REPORT INFORMATION
  Report Type: 
  Country: None (occurrence: None)
  Receive Date: 20070809
  Receipt Date: 20070411
  Transmission Date: 20080115
  Serious: No
  Sender: FDA-Public Use
  Company Number: WAES 0704USA02338

PATIENT
  Age: 27 Year
  Sex: Female
  Weight: 69.4003 kg

DRUGS (1)
  1. ZOLINZA [Suspect]
     Indication: MYCOSIS FUNGOIDES
     Dosage: 400MG/DAILY/PO
     Route: 048
     Dates: start: 20070228

REACTIONS (4)
  - ERYTHEMA [None]
  - PAIN [None]
  - PRURITUS [None]
  - SKIN NODULE [None]
